FAERS Safety Report 22019879 (Version 3)
Quarter: 2023Q1

REPORT INFORMATION
  Report Type: Spontaneous
  Country: IT (occurrence: IT)
  Receive Date: 20230222
  Receipt Date: 20230308
  Transmission Date: 20230417
  Serious: Yes (Hospitalization, Other)
  Sender: FDA-Public Use
  Company Number: IT-002147023-NVSC2023IT039175

PATIENT
  Age: 54 Year
  Sex: Female

DRUGS (1)
  1. SIPONIMOD [Suspect]
     Active Substance: SIPONIMOD
     Indication: Secondary progressive multiple sclerosis
     Dosage: 2 MG, QD
     Route: 065

REACTIONS (6)
  - Hemiparesis [Not Recovered/Not Resolved]
  - Cerebral haemorrhage [Unknown]
  - Haemorrhagic stroke [Unknown]
  - Motor dysfunction [Unknown]
  - Dysphagia [Unknown]
  - Dysarthria [Unknown]

NARRATIVE: CASE EVENT DATE: 20230213
